FAERS Safety Report 10958793 (Version 1)
Quarter: 2015Q1

REPORT INFORMATION
  Report Type: Spontaneous
  Country: VN (occurrence: VN)
  Receive Date: 20150326
  Receipt Date: 20150326
  Transmission Date: 20150721
  Serious: Yes (Death)
  Sender: FDA-Public Use
  Company Number: VN-009507513-1503VNM011834

PATIENT
  Age: 55 Year
  Sex: Female

DRUGS (1)
  1. JANUVIA [Suspect]
     Active Substance: SITAGLIPTIN PHOSPHATE
     Dosage: 1 TABLET, ONCE A DAY
     Route: 048
     Dates: start: 20141124

REACTIONS (1)
  - Death [Fatal]
